FAERS Safety Report 4998945-7 (Version None)
Quarter: 2006Q2

REPORT INFORMATION
  Report Type: 
  Country: None (occurrence: None)
  Receive Date: 20060509
  Receipt Date: 20040322
  Transmission Date: 20061013
  Serious: Yes (Hospitalization, Other)
  Sender: FDA-Public Use
  Company Number: 2004019568

PATIENT
  Sex: Female

DRUGS (3)
  1. TIKOSYN [Suspect]
     Indication: ATRIAL FIBRILLATION
     Dosage: ORAL
     Route: 048
  2. VERAPAMIL [Suspect]
     Indication: ILL-DEFINED DISORDER
     Dosage: QID
  3. SOTALOL HCL [Concomitant]

REACTIONS (3)
  - BLOOD MAGNESIUM DECREASED [None]
  - DRUG INTERACTION [None]
  - ELECTROCARDIOGRAM QT PROLONGED [None]
